FAERS Safety Report 7960730-1 (Version None)
Quarter: 2011Q4

REPORT INFORMATION
  Report Type: 
  Country: None (occurrence: None)
  Receive Date: 20111206
  Receipt Date: 20100218
  Transmission Date: 20120403
  Serious: Yes (Death)
  Sender: FDA-Public Use
  Company Number: PHHY2010IS092760

PATIENT
  Sex: Female

DRUGS (1)
  1. DICLOFENAC [Suspect]
     Dosage: UNK

REACTIONS (1)
  - CARDIAC ARREST [None]
